FAERS Safety Report 6372603-9 (Version None)
Quarter: 2009Q3

REPORT INFORMATION
  Report Type: 
  Country: None (occurrence: None)
  Receive Date: 20090924
  Receipt Date: 20080407
  Transmission Date: 20100115
  Serious: No
  Sender: FDA-Public Use
  Company Number: US-ASTRAZENECA-2008UW20672

PATIENT
  Age: 14 Year
  Sex: Female

DRUGS (5)
  1. SEROQUEL [Suspect]
     Indication: MAJOR DEPRESSION
     Route: 048
     Dates: start: 20080331
  2. SEROQUEL [Suspect]
     Indication: OPPOSITIONAL DEFIANT DISORDER
     Route: 048
     Dates: start: 20080331
  3. SEROQUEL [Suspect]
     Route: 048
  4. SEROQUEL [Suspect]
     Route: 048
  5. PAROXETINE HCL [Concomitant]

REACTIONS (6)
  - AGITATION [None]
  - EXTRAPYRAMIDAL DISORDER [None]
  - MANIA [None]
  - PRESSURE OF SPEECH [None]
  - RESTLESSNESS [None]
  - TARDIVE DYSKINESIA [None]
